FAERS Safety Report 6980994-0 (Version None)
Quarter: 2010Q3

REPORT INFORMATION
  Report Type: 
  Country: None (occurrence: None)
  Receive Date: 20100914
  Receipt Date: 20100906
  Transmission Date: 20110219
  Serious: Yes (Other)
  Sender: FDA-Public Use
  Company Number: B0674016A

PATIENT
  Age: 50 Year
  Sex: Male

DRUGS (5)
  1. ALKERAN [Suspect]
     Indication: PRODUCT USED FOR UNKNOWN INDICATION
     Route: 042
  2. ENDOXAN [Concomitant]
     Route: 065
  3. ETOPOSIDE [Concomitant]
     Route: 065
  4. DEXAMETHASONE [Concomitant]
     Route: 065
  5. POLAPREZINC [Concomitant]

REACTIONS (4)
  - HAEMORRHAGE [None]
  - NEUTROPHIL COUNT DECREASED [None]
  - PAIN [None]
  - STOMATITIS [None]
